FAERS Safety Report 24861492 (Version 1)
Quarter: 2025Q1

REPORT INFORMATION
  Report Type: Spontaneous
  Country: CN (occurrence: CN)
  Receive Date: 20250120
  Receipt Date: 20250120
  Transmission Date: 20250409
  Serious: Yes (Other)
  Sender: ABBVIE
  Company Number: CN-ABBVIE-6087690

PATIENT
  Age: 62 Year
  Sex: Male
  Weight: 51 kg

DRUGS (4)
  1. VENETOCLAX [Suspect]
     Active Substance: VENETOCLAX
     Indication: Neoplasm malignant
     Dosage: 200 MILLIGRAM
     Route: 048
     Dates: start: 20241221, end: 20241221
  2. VENETOCLAX [Suspect]
     Active Substance: VENETOCLAX
     Indication: Neoplasm malignant
     Dosage: 400 MILLIGRAM
     Route: 048
     Dates: start: 20241222, end: 20250102
  3. VENETOCLAX [Suspect]
     Active Substance: VENETOCLAX
     Indication: Neoplasm malignant
     Dosage: 100 MILIGRAM
     Route: 048
     Dates: start: 20241220, end: 20241220
  4. AZACITIDINE [Suspect]
     Active Substance: AZACITIDINE
     Indication: Neoplasm malignant
     Dosage: 112.5 MILLIGRAM
     Route: 058
     Dates: start: 20241220, end: 20241226

REACTIONS (3)
  - Myelosuppression [Recovering/Resolving]
  - Agranulocytosis [Unknown]
  - Pyrexia [Unknown]

NARRATIVE: CASE EVENT DATE: 20250103
